FAERS Safety Report 20694397 (Version 2)
Quarter: 2022Q2

REPORT INFORMATION
  Report Type: Spontaneous
  Country: LT (occurrence: LT)
  Receive Date: 20220411
  Receipt Date: 20220415
  Transmission Date: 20220720
  Serious: Yes (Other)
  Sender: FDA-Public Use
  Company Number: LT-ASTELLAS-2022US012954

PATIENT
  Age: 59 Year
  Sex: Male

DRUGS (1)
  1. XTANDI [Suspect]
     Active Substance: ENZALUTAMIDE
     Indication: Prostate cancer
     Dosage: UNK UNK, UNKNOWN FREQ.
     Route: 065
     Dates: start: 202010, end: 202109

REACTIONS (8)
  - Fatigue [Unknown]
  - Malignant neoplasm progression [Unknown]
  - General physical health deterioration [Recovered/Resolved]
  - Prostatic specific antigen increased [Recovered/Resolved]
  - Impaired work ability [Recovered/Resolved]
  - Pain [Recovered/Resolved]
  - Asthenia [Unknown]
  - Drug ineffective [Unknown]
